FAERS Safety Report 14260378 (Version 21)
Quarter: 2025Q1

REPORT INFORMATION
  Report Type: Spontaneous
  Country: US (occurrence: US)
  Receive Date: 20171207
  Receipt Date: 20250304
  Transmission Date: 20250408
  Serious: Yes (Other)
  Sender: PFIZER
  Company Number: US-PFIZER INC-2017525029

PATIENT
  Age: 60 Year
  Sex: Female
  Weight: 58.97 kg

DRUGS (9)
  1. PREMARIN [Suspect]
     Active Substance: ESTROGENS, CONJUGATED
     Indication: Hysterectomy
     Dosage: 1.25 MG, EVERY NIGHT
     Route: 048
     Dates: start: 1984
  2. PREMARIN [Suspect]
     Active Substance: ESTROGENS, CONJUGATED
     Indication: Oestrogen replacement therapy
     Dosage: 1.25 MG, ONCE A DAY
     Route: 048
     Dates: start: 1985
  3. PREMARIN [Suspect]
     Active Substance: ESTROGENS, CONJUGATED
     Indication: Hormone replacement therapy
     Dosage: 1.25 MG, ONCE A DAY
     Route: 048
     Dates: start: 1986
  4. PREMARIN [Suspect]
     Active Substance: ESTROGENS, CONJUGATED
     Dosage: 1.25 MG, ALTERNATE DAY (ONE ON ONE DAY THEN OFF ONE DAY)
     Route: 048
     Dates: end: 2020
  5. PREMARIN [Suspect]
     Active Substance: ESTROGENS, CONJUGATED
  6. PREMARIN [Suspect]
     Active Substance: ESTROGENS, CONJUGATED
     Dosage: 1.25 MG, ONCE A DAY AT NIGHT
     Route: 048
     Dates: end: 202502
  7. HYDROCODONE [Concomitant]
     Active Substance: HYDROCODONE
  8. PYRIDIUM [Concomitant]
     Active Substance: PHENAZOPYRIDINE
  9. METHYLPREDNISOLONE [Concomitant]
     Active Substance: METHYLPREDNISOLONE

REACTIONS (8)
  - Postmenopausal haemorrhage [Not Recovered/Not Resolved]
  - Drug ineffective [Unknown]
  - Intentional product misuse [Unknown]
  - Asthenia [Not Recovered/Not Resolved]
  - Illness [Unknown]
  - Memory impairment [Unknown]
  - Dysmenorrhoea [Unknown]
  - Vaginal discharge [Unknown]

NARRATIVE: CASE EVENT DATE: 20171101
